FAERS Safety Report 11630425 (Version 3)
Quarter: 2016Q3

REPORT INFORMATION
  Report Type: Report from Study
  Country: BR (occurrence: BR)
  Receive Date: 20151014
  Receipt Date: 20160816
  Transmission Date: 20161109
  Serious: Yes (Life-Threatening, Other)
  Sender: FDA-Public Use
  Company Number: PHHY2015BR103929

PATIENT
  Age: 84 Year
  Sex: Female

DRUGS (2)
  1. DEOCIL [Suspect]
     Active Substance: KETOROLAC TROMETHAMINE
     Indication: PRODUCT USED FOR UNKNOWN INDICATION
     Dosage: 2 DF, AT NIGHT
     Route: 065
  2. ACLASTA [Suspect]
     Active Substance: ZOLEDRONIC ACID
     Indication: OSTEOPOROSIS
     Dosage: 5 MG, Q12MO
     Route: 065
     Dates: start: 201409

REACTIONS (15)
  - Rib fracture [Unknown]
  - Emotional disorder [Unknown]
  - Anger [Unknown]
  - Arthritis [Recovering/Resolving]
  - Fatigue [Not Recovered/Not Resolved]
  - Fall [Not Recovered/Not Resolved]
  - Head discomfort [Unknown]
  - Feeling hot [Unknown]
  - Dizziness [Recovering/Resolving]
  - Osteoporosis [Not Recovered/Not Resolved]
  - Gait disturbance [Not Recovered/Not Resolved]
  - Arthropathy [Not Recovered/Not Resolved]
  - Apparent death [Unknown]
  - Eye disorder [Unknown]
  - Malaise [Unknown]

NARRATIVE: CASE EVENT DATE: 20151001
